FAERS Safety Report 17042553 (Version 6)
Quarter: 2021Q1

REPORT INFORMATION
  Report Type: Spontaneous
  Country: US (occurrence: US)
  Receive Date: 20191118
  Receipt Date: 20210308
  Transmission Date: 20210419
  Serious: Yes (Hospitalization, Other)
  Sender: FDA-Public Use
  Company Number: US-PFIZER INC-2019491540

PATIENT
  Age: 77 Year
  Sex: Female
  Weight: 90.7 kg

DRUGS (4)
  1. TOVIAZ [Suspect]
     Active Substance: FESOTERODINE FUMARATE
     Dosage: 10 MG, 1X/DAY
     Dates: start: 201401
  2. ELIQUIS [Concomitant]
     Active Substance: APIXABAN
     Dosage: UNK
  3. TOVIAZ [Suspect]
     Active Substance: FESOTERODINE FUMARATE
     Indication: BLADDER DISORDER
     Dosage: UNK, 1X/DAY (8 ONCE A DAY)
     Dates: start: 201209
  4. THYROID [Concomitant]
     Active Substance: LEVOTHYROXINE\LIOTHYRONINE
     Dosage: UNK

REACTIONS (7)
  - Wrist fracture [Unknown]
  - Renal cyst [Unknown]
  - Blood bilirubin increased [Not Recovered/Not Resolved]
  - Drug dependence [Not Recovered/Not Resolved]
  - Overdose [Unknown]
  - Blood creatinine increased [Not Recovered/Not Resolved]
  - Fall [Unknown]

NARRATIVE: CASE EVENT DATE: 201209
